FAERS Safety Report 7355067-8 (Version None)
Quarter: 2011Q1

REPORT INFORMATION
  Report Type: 
  Country: None (occurrence: None)
  Receive Date: 20110316
  Receipt Date: 20110311
  Transmission Date: 20110831
  Serious: Yes (Hospitalization, Other)
  Sender: FDA-Public Use
  Company Number: US-PFIZER INC-2006069810

PATIENT
  Sex: Female

DRUGS (4)
  1. NEURONTIN [Suspect]
     Dosage: 300 MG, 1X/DAY
     Dates: start: 20020215
  2. SEROQUEL [Concomitant]
     Dosage: UNK
     Dates: start: 19990101
  3. NEURONTIN [Suspect]
     Indication: ILL-DEFINED DISORDER
     Dosage: 600-900 MG DAILY
     Dates: start: 19980706, end: 20020101
  4. OXYCONTIN [Concomitant]
     Dosage: UNK
     Dates: start: 19990101

REACTIONS (1)
  - SUICIDE ATTEMPT [None]
